FAERS Safety Report 14895571 (Version 1)
Quarter: 2018Q2

REPORT INFORMATION
  Report Type: Spontaneous
  Country: PL (occurrence: PL)
  Receive Date: 20180515
  Receipt Date: 20180515
  Transmission Date: 20180711
  Serious: Yes (Hospitalization, Other)
  Sender: FDA-Public Use
  Company Number: PHHY2018PL006941

PATIENT
  Age: 3 Year
  Sex: Female

DRUGS (3)
  1. VOTUBIA [Suspect]
     Active Substance: EVEROLIMUS
     Dosage: 5 MG, QD
     Route: 065
  2. VOTUBIA [Suspect]
     Active Substance: EVEROLIMUS
     Indication: PRODUCT USED FOR UNKNOWN INDICATION
     Dosage: 2.5 MG, QD
     Route: 065
     Dates: start: 2013
  3. VOTUBIA [Suspect]
     Active Substance: EVEROLIMUS
     Dosage: 2.5 MG, QD
     Route: 065

REACTIONS (22)
  - Epilepsy [Unknown]
  - C-reactive protein increased [Unknown]
  - Eyelid tumour [Unknown]
  - Pneumonia [Unknown]
  - Respiratory tract infection [Unknown]
  - Wheezing [Unknown]
  - Tardive dyskinesia [Unknown]
  - Tremor [Unknown]
  - Pleurisy [Unknown]
  - Central nervous system lesion [Recovered/Resolved]
  - Pneumonia pneumococcal [Unknown]
  - Disease progression [Recovered/Resolved]
  - Psychomotor skills impaired [Unknown]
  - Myoclonus [Unknown]
  - Dyskinesia [Unknown]
  - Pyrexia [Not Recovered/Not Resolved]
  - Empyema [Unknown]
  - Pneumonia respiratory syncytial viral [Unknown]
  - Inflammatory marker increased [Unknown]
  - Pleural effusion [Recovered/Resolved]
  - Respiratory failure [Unknown]
  - General physical condition abnormal [Unknown]

NARRATIVE: CASE EVENT DATE: 20130905
